FAERS Safety Report 20581614 (Version 1)
Quarter: 2022Q1

REPORT INFORMATION
  Report Type: Report from Study
  Country: IT (occurrence: IT)
  Receive Date: 20220311
  Receipt Date: 20220311
  Transmission Date: 20220423
  Serious: Yes (Other)
  Sender: FDA-Public Use
  Company Number: IT-SUN PHARMACEUTICAL INDUSTRIES LTD-2022R1-329203

PATIENT
  Age: 50 Year
  Sex: Female

DRUGS (4)
  1. CEFTRIAXONE [Suspect]
     Active Substance: CEFTRIAXONE
     Indication: COVID-19
     Dosage: UNK
     Route: 065
  2. HYDROXYCHLOROQUINE [Suspect]
     Active Substance: HYDROXYCHLOROQUINE
     Indication: COVID-19
     Dosage: UNK
     Route: 065
  3. DARUNAVIR [Concomitant]
     Active Substance: DARUNAVIR
     Indication: COVID-19
     Dosage: UNK
     Route: 065
  4. RITONAVIR [Concomitant]
     Active Substance: RITONAVIR
     Indication: COVID-19
     Dosage: UNK
     Route: 065

REACTIONS (1)
  - Condition aggravated [Unknown]
